FAERS Safety Report 25683788 (Version 2)
Quarter: 2025Q3

REPORT INFORMATION
  Report Type: Report from Study
  Country: EU (occurrence: EU)
  Receive Date: 20250814
  Receipt Date: 20250828
  Transmission Date: 20251021
  Serious: Yes (Other)
  Sender: SERVIER
  Company Number: EU-SERVIER-S25011630

PATIENT

DRUGS (3)
  1. VORASIDENIB [Suspect]
     Active Substance: VORASIDENIB
     Indication: Oligodendroglioma
     Route: 048
     Dates: start: 202408, end: 20250806
  2. VORASIDENIB [Suspect]
     Active Substance: VORASIDENIB
     Route: 048
     Dates: start: 20250813
  3. ESCITALOPRAM [Concomitant]
     Active Substance: ESCITALOPRAM OXALATE
     Indication: Depression
     Dosage: 10 MG, QD
     Route: 065
     Dates: start: 20250308

REACTIONS (1)
  - Hepatotoxicity [Recovered/Resolved]

NARRATIVE: CASE EVENT DATE: 20250801
